FAERS Safety Report 9620418 (Version 1)
Quarter: 2013Q4

REPORT INFORMATION
  Report Type: Spontaneous
  Country: US (occurrence: US)
  Receive Date: 20131015
  Receipt Date: 20131015
  Transmission Date: 20140711
  Serious: No
  Sender: FDA-Public Use
  Company Number: -SAAVPROD-BMS17443946

PATIENT
  Age: 74 Year
  Sex: Female

DRUGS (2)
  1. AVALIDE [Suspect]
     Indication: BLOOD PRESSURE
     Dosage: 1DF:150/12.5MG
  2. IRBESARTAN + HCTZ [Suspect]

REACTIONS (2)
  - Myalgia [Unknown]
  - Drug ineffective [Unknown]
